FAERS Safety Report 8620716-0 (Version None)
Quarter: 2012Q3

REPORT INFORMATION
  Report Type: 
  Country: None (occurrence: None)
  Receive Date: 20120824
  Receipt Date: 20120810
  Transmission Date: 20120928
  Serious: Yes (Other)
  Sender: FDA-Public Use
  Company Number: JP-VERTEX PHARMACEUTICAL INC.-AE-2012-007466

PATIENT
  Age: 65 Year
  Sex: Male

DRUGS (12)
  1. REBETOL [Concomitant]
     Indication: HEPATITIS C
     Dosage: 800 MG, QD
     Route: 048
     Dates: start: 20120507
  2. REBETOL [Concomitant]
     Dosage: 200 MG, QD
     Route: 048
     Dates: start: 20120709
  3. TALION                             /01587402/ [Concomitant]
     Dosage: 20 MG, QD
     Route: 048
  4. ALLOPURINOL [Concomitant]
     Dosage: 200 MG, QD
     Route: 048
     Dates: end: 20120708
  5. PEGINTRON                          /01543001/ [Concomitant]
     Dosage: 0.7 A?G/KG, UNK
     Route: 058
     Dates: start: 20120514, end: 20120521
  6. REBETOL [Concomitant]
     Dosage: 600 MG, QD
     Route: 048
     Dates: start: 20120618
  7. VX-950 [Suspect]
     Indication: HEPATITIS C
     Dosage: 2250 MG, QD
     Route: 048
     Dates: start: 20120507, end: 20120729
  8. REBETOL [Concomitant]
     Dosage: 400 MG, QD
     Route: 048
     Dates: start: 20120625, end: 20120708
  9. PEGINTRON                          /01543001/ [Concomitant]
     Indication: HEPATITIS C
     Route: 058
     Dates: start: 20120507, end: 20120507
  10. PEGINTRON                          /01543001/ [Concomitant]
     Dosage: 1.2 A?G/KG, UNK
     Route: 058
     Dates: start: 20120528
  11. AMOBAN [Concomitant]
     Dosage: 7.5 MG, QD
     Route: 048
     Dates: start: 20120515
  12. ROXATIDINE ACETATE HCL [Concomitant]
     Dosage: 150 MG, QD
     Route: 048

REACTIONS (1)
  - NEUTROPHIL COUNT DECREASED [None]
